FAERS Safety Report 17088773 (Version 1)
Quarter: 2019Q4

REPORT INFORMATION
  Report Type: Spontaneous
  Country: US (occurrence: US)
  Receive Date: 20191031
  Receipt Date: 20191031
  Transmission Date: 20200122
  Serious: No
  Sender: FDA-Public Use
  Company Number: None

PATIENT
  Age: 64 Year
  Sex: Female

DRUGS (1)
  1. MAVYRET [Suspect]
     Active Substance: GLECAPREVIR\PIBRENTASVIR
     Dosage: ?          OTHER DOSE:3 TABLETS;?
     Route: 048
     Dates: start: 20191012

REACTIONS (5)
  - Insomnia [None]
  - Visual impairment [None]
  - Blister [None]
  - Abnormal dreams [None]
  - Pruritus [None]

NARRATIVE: CASE EVENT DATE: 20191031
